FAERS Safety Report 6596156-5 (Version None)
Quarter: 2010Q1

REPORT INFORMATION
  Report Type: 
  Country: None (occurrence: None)
  Receive Date: 20100219
  Receipt Date: 20100219
  Transmission Date: 20100710
  Serious: Yes (Hospitalization)
  Sender: FDA-Public Use
  Company Number: None

PATIENT
  Age: 83 Year
  Sex: Male

DRUGS (1)
  1. ASPIRIN AND DIPYRIDAMOLE [Suspect]
     Indication: TRANSIENT ISCHAEMIC ATTACK
     Dosage: 1 TAB BID PO
     Route: 048
     Dates: start: 20090315, end: 20090924

REACTIONS (4)
  - ANGIOEDEMA [None]
  - LIP SWELLING [None]
  - PHOTOSENSITIVITY REACTION [None]
  - RASH [None]
